FAERS Safety Report 12487342 (Version 1)
Quarter: 2016Q2

REPORT INFORMATION
  Report Type: Spontaneous
  Country: US (occurrence: US)
  Receive Date: 20160622
  Receipt Date: 20160622
  Transmission Date: 20160815
  Serious: No
  Sender: FDA-Public Use
  Company Number: US-AMGEN-USASP2016079111

PATIENT
  Age: 60 Year
  Sex: Female

DRUGS (1)
  1. ENBREL [Suspect]
     Active Substance: ETANERCEPT
     Indication: RHEUMATOID ARTHRITIS
     Dosage: UNK
     Route: 065

REACTIONS (9)
  - Nervousness [Unknown]
  - Underdose [Unknown]
  - Nasopharyngitis [Unknown]
  - Wrong technique in product usage process [Unknown]
  - Headache [Unknown]
  - Hyperventilation [Unknown]
  - Injection site haemorrhage [Unknown]
  - Nausea [Unknown]
  - Injection site pruritus [Unknown]
